FAERS Safety Report 9679254 (Version 2)
Quarter: 2013Q4

REPORT INFORMATION
  Report Type: Report from Study
  Country: GB (occurrence: GB)
  Receive Date: 20131109
  Receipt Date: 20131115
  Transmission Date: 20140711
  Serious: Yes (Hospitalization)
  Sender: FDA-Public Use
  Company Number: GB-ROCHE-1299125

PATIENT
  Age: 81 Year
  Sex: Male
  Weight: 68.7 kg

DRUGS (4)
  1. BEVACIZUMAB [Suspect]
     Indication: COLORECTAL CANCER
     Route: 042
     Dates: start: 20130711
  2. CAPECITABINE [Concomitant]
     Indication: COLORECTAL CANCER
     Route: 048
     Dates: start: 20130711
  3. SIMVASTATIN [Concomitant]
     Indication: HYPERTENSION
     Route: 048
  4. ASPIRIN [Concomitant]
     Indication: HYPERTENSION
     Route: 048

REACTIONS (1)
  - Intestinal obstruction [Recovered/Resolved]
